FAERS Safety Report 18683560 (Version 1)
Quarter: 2020Q4

REPORT INFORMATION
  Report Type: Spontaneous
  Country: GB (occurrence: GB)
  Receive Date: 20201230
  Receipt Date: 20201230
  Transmission Date: 20210114
  Serious: Yes (Other)
  Sender: FDA-Public Use
  Company Number: GB-PFIZER INC-2020518002

PATIENT
  Age: 68 Year
  Sex: Female

DRUGS (8)
  1. AMLODIPINE [Concomitant]
     Active Substance: AMLODIPINE BESYLATE
     Dosage: UNK, UNKNOWN
     Route: 065
  2. LEVETIRACETAM. [Concomitant]
     Active Substance: LEVETIRACETAM
     Dosage: UNK, UNKNOWN
     Route: 065
  3. MEKTOVI [Suspect]
     Active Substance: BINIMETINIB
     Indication: METASTATIC MALIGNANT MELANOMA
     Dosage: 90 MG, QD (1/DAY)
     Route: 048
     Dates: start: 20200218, end: 20200512
  4. BRAFTOVI [Suspect]
     Active Substance: ENCORAFENIB
     Dosage: 450 MG/DAY
     Route: 065
  5. LEVOTHYROXINE SODIUM. [Concomitant]
     Active Substance: LEVOTHYROXINE SODIUM
     Dosage: UNK, UNKNOWN
     Route: 065
  6. GABAPENTIN. [Concomitant]
     Active Substance: GABAPENTIN
     Dosage: UNK, UNKNOWN
     Route: 065
  7. DEXAMETHASONE. [Concomitant]
     Active Substance: DEXAMETHASONE
     Dosage: UNK, UNKNOWN
     Route: 065
  8. OMEPRAZOLE. [Concomitant]
     Active Substance: OMEPRAZOLE
     Dosage: UNK, UNKNOWN
     Route: 065

REACTIONS (1)
  - Alanine aminotransferase increased [Recovered/Resolved]

NARRATIVE: CASE EVENT DATE: 20200414
